FAERS Safety Report 23571788 (Version 1)
Quarter: 2024Q1

REPORT INFORMATION
  Report Type: Spontaneous
  Country: US (occurrence: None)
  Receive Date: 20240227
  Receipt Date: 20240227
  Transmission Date: 20240410
  Serious: Yes (Other)
  Sender: FDA-Public Use
  Company Number: None

PATIENT
  Age: 47 Year
  Sex: Male
  Weight: 144 kg

DRUGS (7)
  1. ENBREL [Suspect]
     Active Substance: ETANERCEPT
     Dosage: OTHER FREQUENCY : WEEKLY;?
     Route: 058
  2. SYNTHROID [Concomitant]
     Active Substance: LEVOTHYROXINE SODIUM
  3. pepcid 40 mg [Concomitant]
  4. folic Acid 1 mg [Concomitant]
  5. prednisone 7.5 mg [Concomitant]
  6. MTX 10 mg [Concomitant]
  7. LISINOPRIL [Concomitant]
     Active Substance: LISINOPRIL

REACTIONS (2)
  - Immunology test abnormal [None]
  - Eye disorder [None]

NARRATIVE: CASE EVENT DATE: 20240227
